FAERS Safety Report 12856571 (Version 1)
Quarter: 2016Q4

REPORT INFORMATION
  Report Type: Spontaneous
  Country: US (occurrence: US)
  Receive Date: 20161017
  Receipt Date: 20161017
  Transmission Date: 20170207
  Serious: Yes (Death)
  Sender: FDA-Public Use
  Company Number: None

PATIENT
  Age: 93 Year
  Sex: Female

DRUGS (1)
  1. REVLIMID [Suspect]
     Active Substance: LENALIDOMIDE
     Indication: PLASMA CELL MYELOMA
     Route: 048
     Dates: start: 20160908

REACTIONS (6)
  - Atrial fibrillation [None]
  - Mental status changes [None]
  - Acute kidney injury [None]
  - Lethargy [None]
  - Hypercalcaemia [None]
  - Pulmonary embolism [None]

NARRATIVE: CASE EVENT DATE: 20161011
